FAERS Safety Report 8328340-4 (Version None)
Quarter: 2012Q2

REPORT INFORMATION
  Report Type: 
  Country: None (occurrence: None)
  Receive Date: 20120424
  Receipt Date: 20120410
  Transmission Date: 20120825
  Serious: Yes (Other)
  Sender: FDA-Public Use
  Company Number: OMX-2012-00011

PATIENT
  Sex: Male

DRUGS (2)
  1. EVITHROM [Suspect]
     Indication: PRODUCT USED FOR UNKNOWN INDICATION
  2. SURGIFLO [Concomitant]

REACTIONS (4)
  - WOUND DEHISCENCE [None]
  - PURULENCE [None]
  - INDURATION [None]
  - IMPAIRED HEALING [None]
